FAERS Safety Report 6388355-2 (Version None)
Quarter: 2009Q4

REPORT INFORMATION
  Report Type: 
  Country: None (occurrence: None)
  Receive Date: 20091005
  Receipt Date: 20090924
  Transmission Date: 20100525
  Serious: Yes (Hospitalization)
  Sender: FDA-Public Use
  Company Number: FR-MERCK-0909FRA00073

PATIENT
  Age: 85 Year
  Sex: Female

DRUGS (11)
  1. ZOCOR [Suspect]
     Route: 048
     Dates: start: 19890101
  2. FLUINDIONE [Suspect]
     Route: 048
     Dates: start: 19890101, end: 20090801
  3. FLUINDIONE [Suspect]
     Route: 048
     Dates: start: 20090801
  4. SPIRONOLACTONE AND ALTHIAZIDE [Suspect]
     Route: 048
     Dates: start: 19890101
  5. METHOTREXATE [Suspect]
     Route: 048
     Dates: start: 20060101, end: 20090801
  6. METHOTREXATE [Suspect]
     Route: 048
     Dates: start: 20090801
  7. ALENDRONATE SODIUM [Suspect]
     Route: 048
     Dates: start: 20060101
  8. RIVASTIGMINE [Suspect]
     Route: 061
     Dates: start: 20090601, end: 20090801
  9. TRIMETAZIDINE HYDROCHLORIDE [Suspect]
     Route: 048
     Dates: start: 19890101
  10. PREDNISOLONE SODIUM METASULFOBENZOATE [Suspect]
     Route: 065
     Dates: start: 20060101
  11. TIANEPTINE SODIUM [Suspect]
     Route: 065
     Dates: start: 20090601, end: 20090801

REACTIONS (1)
  - ORAL MUCOSA EROSION [None]
